FAERS Safety Report 9150679 (Version 2)
Quarter: 2013Q2

REPORT INFORMATION
  Report Type: Spontaneous
  Country: US (occurrence: US)
  Receive Date: 20130308
  Receipt Date: 20130610
  Transmission Date: 20140414
  Serious: No
  Sender: FDA-Public Use
  Company Number: US-ASTELLAS-2013US001471

PATIENT
  Age: 62 Year
  Sex: Male
  Weight: 76 kg

DRUGS (9)
  1. XTANDI [Suspect]
     Indication: PROSTATE CANCER
     Dosage: 160 MG, UID/QD
     Route: 048
     Dates: start: 201212
  2. OMEPRAZOLE [Interacting]
     Indication: GASTROOESOPHAGEAL REFLUX DISEASE
     Dosage: 20 MG, UID/QD
     Route: 048
     Dates: start: 19960201
  3. CITALOPRAM [Concomitant]
     Indication: DEPRESSION
     Dosage: 20 MG, UID/QD
     Route: 048
     Dates: start: 20100701
  4. CITALOPRAM [Concomitant]
     Indication: ANXIETY
  5. LEVOTHYROXINE [Concomitant]
     Indication: THYROID DISORDER
     Dosage: 100 MG, UID/QD
     Route: 048
     Dates: start: 20111001
  6. METFORMIN [Concomitant]
     Indication: BLOOD GLUCOSE ABNORMAL
     Dosage: 500 MG, UID/QD
     Route: 048
     Dates: start: 20110204
  7. LORAZEPAM [Concomitant]
     Indication: INSOMNIA
     Dosage: 0.5 MG, UID/QD
     Route: 048
     Dates: start: 20110401
  8. OXYCODONE [Concomitant]
     Indication: PAIN
     Dosage: 10 MG, PRN Q4H
     Route: 048
     Dates: start: 20120301
  9. PROCHLORPERAZINE [Concomitant]
     Indication: NAUSEA
     Dosage: 10 MG,  UID/QD PRN
     Route: 048
     Dates: start: 20120301

REACTIONS (6)
  - Incorrect storage of drug [Unknown]
  - Nausea [Unknown]
  - Muscle spasms [Unknown]
  - Vomiting [Unknown]
  - Prostatic specific antigen increased [Unknown]
  - Drug interaction [Unknown]
